FAERS Safety Report 6760964-8 (Version None)
Quarter: 2010Q2

REPORT INFORMATION
  Report Type: 
  Country: None (occurrence: None)
  Receive Date: 20100608
  Receipt Date: 20100519
  Transmission Date: 20101027
  Serious: Yes (Other)
  Sender: FDA-Public Use
  Company Number: A0863176A

PATIENT
  Sex: Female
  Weight: 53 kg

DRUGS (3)
  1. NIQUITIN 21MG [Suspect]
     Indication: SMOKING CESSATION THERAPY
     Dosage: 21MG PER DAY
     Route: 062
     Dates: start: 20100503
  2. UNKNOWN [Concomitant]
  3. CLONAZEPAM [Concomitant]
     Dosage: 2MG PER DAY

REACTIONS (8)
  - ANXIETY [None]
  - DIARRHOEA [None]
  - HYPOAESTHESIA [None]
  - HYPOAESTHESIA ORAL [None]
  - LETHARGY [None]
  - LOSS OF CONSCIOUSNESS [None]
  - NAUSEA [None]
  - VOMITING [None]
